FAERS Safety Report 18080981 (Version 1)
Quarter: 2020Q3

REPORT INFORMATION
  Report Type: Spontaneous
  Country: US (occurrence: US)
  Receive Date: 20200728
  Receipt Date: 20200728
  Transmission Date: 20201103
  Serious: Yes (Hospitalization, Other)
  Sender: FDA-Public Use
  Company Number: US-PHARMING-PHAUS2020000285

PATIENT

DRUGS (4)
  1. HEPARIN [Concomitant]
     Active Substance: HEPARIN SODIUM
     Indication: PRODUCT USED FOR UNKNOWN INDICATION
  2. EPINEPHRINE. [Concomitant]
     Active Substance: EPINEPHRINE
     Indication: PRODUCT USED FOR UNKNOWN INDICATION
  3. RUCONEST [Suspect]
     Active Substance: HUMAN C1-ESTERASE INHIBITOR
     Dosage: 4050 IU INTERNATIONAL UNIT(S), AS NEEDED
     Route: 042
     Dates: start: 20180518
  4. RUCONEST [Suspect]
     Active Substance: HUMAN C1-ESTERASE INHIBITOR
     Indication: HEREDITARY ANGIOEDEMA
     Dosage: 4050 IU INTERNATIONAL UNIT(S), AS NEEDED
     Route: 042
     Dates: start: 20180518

REACTIONS (6)
  - Road traffic accident [Unknown]
  - Underdose [Unknown]
  - Rotator cuff syndrome [Unknown]
  - Skin laceration [Unknown]
  - Hereditary angioedema [Unknown]
  - Inguinal hernia [Unknown]
